FAERS Safety Report 8281504-0 (Version None)
Quarter: 2012Q2

REPORT INFORMATION
  Report Type: 
  Country: None (occurrence: None)
  Receive Date: 20120413
  Receipt Date: 20120405
  Transmission Date: 20120825
  Serious: Yes (Hospitalization, Other)
  Sender: FDA-Public Use
  Company Number: FR-PFIZER INC-2012085907

PATIENT
  Age: 59 Year
  Sex: Male

DRUGS (13)
  1. ASPIRIN [Concomitant]
     Dosage: 75MG, UNK
  2. PERINDOPRIL ERBUMINE [Suspect]
     Dosage: 2 MG, 1X/DAY
     Route: 048
     Dates: start: 20100701, end: 20111205
  3. LYRICA [Suspect]
     Dosage: UNK
     Route: 048
     Dates: start: 20111202
  4. ATORVASTATIN [Concomitant]
     Dosage: 40MG, UNK
  5. OXYCODONE HCL [Concomitant]
     Dosage: 20MG, UNK
     Route: 048
     Dates: start: 20111202
  6. NITROGLYCERIN [Concomitant]
     Dosage: UNK
  7. POLYETHYLENE GLYCOL [Concomitant]
     Dosage: UNK
     Route: 048
     Dates: start: 20111202
  8. ZOLOFT [Concomitant]
     Dosage: UNK
     Dates: end: 20111202
  9. SERTRALINE HYDROCHLORIDE [Suspect]
     Dosage: 50 MG, 1X/DAY
     Route: 048
     Dates: start: 20111202, end: 20111205
  10. ACETAMINOPHEN [Concomitant]
     Dosage: UNK
     Route: 048
     Dates: start: 20111202
  11. NEBIVOLOL [Concomitant]
  12. OXYCONTIN [Concomitant]
     Dosage: 20 MG, UNK
     Route: 048
     Dates: start: 20111202
  13. PERINDOPRIL ERBUMINE [Concomitant]
     Dosage: 2.5MG, UNK

REACTIONS (3)
  - LIP OEDEMA [None]
  - DYSPHAGIA [None]
  - SALIVARY HYPERSECRETION [None]
